FAERS Safety Report 5932934-0 (Version None)
Quarter: 2008Q4

REPORT INFORMATION
  Report Type: 
  Country: None (occurrence: None)
  Receive Date: 20081028
  Receipt Date: 20080901
  Transmission Date: 20090506
  Serious: Yes (Hospitalization)
  Sender: FDA-Public Use
  Company Number: FR-MERCK-0809USA01487

PATIENT
  Age: 94 Year
  Sex: Female

DRUGS (10)
  1. ENALAPRIL MALEATE [Suspect]
     Route: 048
     Dates: end: 20080727
  2. MODURETIC 5-50 [Suspect]
     Route: 048
     Dates: end: 20080727
  3. ACEBUTOLOL HYDROCHLORIDE [Concomitant]
     Route: 065
  4. VASTAREL [Concomitant]
     Route: 065
  5. ZANIDIP [Concomitant]
     Route: 065
  6. TEMESTA [Concomitant]
     Route: 065
  7. NITROGLYCERIN [Concomitant]
     Route: 065
  8. FORLAX [Concomitant]
     Route: 065
  9. THERALENE [Concomitant]
     Route: 065
  10. RABEPRAZOLE SODIUM [Concomitant]
     Route: 065

REACTIONS (3)
  - CONFUSIONAL STATE [None]
  - FALL [None]
  - HYPONATRAEMIA [None]
